FAERS Safety Report 16297270 (Version 2)
Quarter: 2019Q2

REPORT INFORMATION
  Report Type: Report from Study
  Country: CA (occurrence: CA)
  Receive Date: 20190510
  Receipt Date: 20190515
  Transmission Date: 20190711
  Serious: Yes (Life-Threatening, Hospitalization)
  Sender: FDA-Public Use
  Company Number: CA-BRISTOL-MYERS SQUIBB COMPANY-BMS-2019-012946

PATIENT
  Sex: Male

DRUGS (2)
  1. YERVOY [Suspect]
     Active Substance: IPILIMUMAB
     Indication: RENAL CELL CARCINOMA
     Dosage: 89 MILLIGRAM, Q3WK
     Route: 042
     Dates: start: 20190123
  2. NIVOLUMAB [Suspect]
     Active Substance: NIVOLUMAB
     Indication: RENAL CELL CARCINOMA
     Dosage: 265 MILLIGRAM, Q3WK
     Route: 042
     Dates: start: 20190123

REACTIONS (15)
  - Cerebral disorder [Recovered/Resolved]
  - Dizziness [Unknown]
  - Oral herpes [Recovering/Resolving]
  - Fatigue [Unknown]
  - Nausea [Unknown]
  - Erythema [Unknown]
  - Eye pain [Unknown]
  - Dry eye [Unknown]
  - Back pain [Recovered/Resolved]
  - Cough [Unknown]
  - Nasopharyngitis [Recovered/Resolved]
  - Influenza [Unknown]
  - Anxiety [Unknown]
  - Euphoric mood [Unknown]
  - Diarrhoea [Recovering/Resolving]
